FAERS Safety Report 15353569 (Version 1)
Quarter: 2018Q3

REPORT INFORMATION
  Report Type: Report from Study
  Country: IT (occurrence: IT)
  Receive Date: 20180905
  Receipt Date: 20180905
  Transmission Date: 20181010
  Serious: Yes (Other)
  Sender: FDA-Public Use
  Company Number: IT-SA-2018SA102784

PATIENT
  Age: 25 Year
  Sex: Male
  Weight: 47 kg

DRUGS (6)
  1. RANITIDINE HYDROCHLORIDE. [Concomitant]
     Active Substance: RANITIDINE HYDROCHLORIDE
     Indication: PROPHYLAXIS
     Dosage: 50 MG,UNK
     Route: 042
     Dates: start: 20170724, end: 20170728
  2. CHLORPHENAMINE MALEATE [Concomitant]
     Active Substance: CHLORPHENIRAMINE MALEATE
     Indication: PROPHYLAXIS
     Dosage: 10 MG,UNK
     Route: 042
     Dates: start: 20170724, end: 20170728
  3. ACICLOVIR [Concomitant]
     Active Substance: ACYCLOVIR
     Indication: PROPHYLAXIS
     Dosage: 400 MG,UNK
     Route: 048
     Dates: start: 20170724, end: 20170824
  4. TACHIPIRINA [Concomitant]
     Active Substance: ACETAMINOPHEN
     Indication: PROPHYLAXIS
     Dosage: 500 MG,UNK
     Route: 048
     Dates: start: 20170724, end: 20170728
  5. SOLU?MEDROL [Concomitant]
     Active Substance: METHYLPREDNISOLONE SODIUM SUCCINATE
     Indication: PROPHYLAXIS
     Dosage: 1000 MG,UNK
     Route: 042
     Dates: start: 20170724, end: 20170728
  6. ALEMTUZUMAB [Suspect]
     Active Substance: ALEMTUZUMAB
     Indication: MULTIPLE SCLEROSIS RELAPSE
     Dosage: UNK UNK,QD
     Route: 041
     Dates: start: 20170724, end: 20170728

REACTIONS (4)
  - Aspartate aminotransferase increased [Recovering/Resolving]
  - Autoimmune thyroiditis [Not Recovered/Not Resolved]
  - Alanine aminotransferase increased [Recovering/Resolving]
  - Transaminases increased [Recovered/Resolved]

NARRATIVE: CASE EVENT DATE: 20180226
